FAERS Safety Report 19244087 (Version 1)
Quarter: 2021Q2

REPORT INFORMATION
  Report Type: Spontaneous
  Country: US (occurrence: US)
  Receive Date: 20210511
  Receipt Date: 20210511
  Transmission Date: 20210717
  Serious: No
  Sender: FDA-Public Use
  Company Number: US-ORGANON-O2104USA002555

PATIENT
  Age: 70 Year
  Sex: Female

DRUGS (2)
  1. SINGULAIR [Suspect]
     Active Substance: MONTELUKAST SODIUM
     Indication: LUNG DISORDER
  2. SINGULAIR [Suspect]
     Active Substance: MONTELUKAST SODIUM
     Indication: BRONCHITIS
     Dosage: 1 DOSAGE FORM, EVERY EVENING, AS NEEDED
     Route: 048
     Dates: start: 201606

REACTIONS (1)
  - Product use in unapproved indication [Unknown]

NARRATIVE: CASE EVENT DATE: 201606
